FAERS Safety Report 7784860-2 (Version None)
Quarter: 2011Q3

REPORT INFORMATION
  Report Type: 
  Country: None (occurrence: None)
  Receive Date: 20110928
  Receipt Date: 20110927
  Transmission Date: 20111222
  Serious: Yes (Death, Other)
  Sender: FDA-Public Use
  Company Number: US-PFIZER INC-2008067699

PATIENT
  Sex: Male
  Weight: 116 kg

DRUGS (4)
  1. CHANTIX [Suspect]
     Dosage: UNK
     Dates: start: 20080710, end: 20080701
  2. CHANTIX [Suspect]
     Dosage: 1 MG, 2X/DAY
     Dates: start: 20080701
  3. CHANTIX [Suspect]
     Indication: SMOKING CESSATION THERAPY
     Dosage: 0.5 MG, 1X/DAY
     Dates: start: 20080401, end: 20080701
  4. CHANTIX [Suspect]
     Dosage: NORMAL DOSES
     Dates: start: 20080724

REACTIONS (4)
  - COMPLETED SUICIDE [None]
  - ABNORMAL BEHAVIOUR [None]
  - HYPERTENSION [None]
  - ABNORMAL DREAMS [None]
